FAERS Safety Report 4830693-6 (Version None)
Quarter: 2005Q4

REPORT INFORMATION
  Report Type: 
  Country: None (occurrence: None)
  Receive Date: 20051115
  Receipt Date: 20051031
  Transmission Date: 20060501
  Serious: Yes (Life-Threatening, Hospitalization, Other)
  Sender: FDA-Public Use
  Company Number: TNZCA200500016

PATIENT
  Age: 46 Year
  Sex: Male
  Weight: 77 kg

DRUGS (7)
  1. INNOHEP [Suspect]
     Indication: THROMBOSIS PROPHYLAXIS
     Dosage: SEE IMAGE
     Route: 058
     Dates: start: 20040901, end: 20041203
  2. INNOHEP [Suspect]
     Indication: THROMBOSIS PROPHYLAXIS
     Dosage: SEE IMAGE
     Route: 058
     Dates: start: 20041207, end: 20041208
  3. INNOHEP [Suspect]
     Indication: THROMBOSIS PROPHYLAXIS
     Dosage: SEE IMAGE
     Route: 058
     Dates: start: 20041209
  4. CISPLATIN [Concomitant]
  5. NAVELBINE [Concomitant]
  6. LIPITOR [Concomitant]
  7. RADIOTHERAPY (THERAPEUTIC RADIOPHARMACEUTICALS) [Concomitant]

REACTIONS (11)
  - ANOREXIA [None]
  - BLOOD FIBRINOGEN INCREASED [None]
  - BODY TEMPERATURE INCREASED [None]
  - DEEP VEIN THROMBOSIS [None]
  - DYSPNOEA [None]
  - FATIGUE [None]
  - FIBRIN D DIMER INCREASED [None]
  - INTERNATIONAL NORMALISED RATIO DECREASED [None]
  - PROTHROMBIN TIME SHORTENED [None]
  - PULMONARY EMBOLISM [None]
  - TACHYCARDIA [None]
